FAERS Safety Report 7978757-2 (Version None)
Quarter: 2011Q4

REPORT INFORMATION
  Report Type: 
  Country: None (occurrence: None)
  Receive Date: 20111214
  Receipt Date: 20111212
  Transmission Date: 20120403
  Serious: Yes (Hospitalization, Other)
  Sender: FDA-Public Use
  Company Number: TW-PFIZER INC-2011301636

PATIENT
  Sex: Female

DRUGS (1)
  1. AROMASIN [Suspect]
     Indication: BREAST CANCER

REACTIONS (2)
  - LIMB DISCOMFORT [None]
  - HERPES ZOSTER [None]
